FAERS Safety Report 19313227 (Version 1)
Quarter: 2021Q2

REPORT INFORMATION
  Report Type: Spontaneous
  Country: US (occurrence: US)
  Receive Date: 20210527
  Receipt Date: 20210527
  Transmission Date: 20210717
  Serious: Yes (Other)
  Sender: FDA-Public Use
  Company Number: US-ABBVIE-21K-163-3916767-00

PATIENT
  Sex: Female

DRUGS (2)
  1. ORILISSA [Suspect]
     Active Substance: ELAGOLIX SODIUM
     Route: 048
     Dates: end: 2021
  2. ORILISSA [Suspect]
     Active Substance: ELAGOLIX SODIUM
     Indication: ENDOMETRIOSIS
     Route: 048
     Dates: start: 202011

REACTIONS (10)
  - Adverse drug reaction [Unknown]
  - Surgery [Unknown]
  - Blood oestrogen decreased [Unknown]
  - Weight increased [Unknown]
  - Alopecia [Recovering/Resolving]
  - Acne [Unknown]
  - Feeling abnormal [Recovered/Resolved]
  - Asthenia [Recovering/Resolving]
  - Migraine [Unknown]
  - Pain [Unknown]

NARRATIVE: CASE EVENT DATE: 202102
